FAERS Safety Report 12639420 (Version 1)
Quarter: 2016Q3

REPORT INFORMATION
  Report Type: Spontaneous
  Country: US (occurrence: None)
  Receive Date: 20160809
  Receipt Date: 20160809
  Transmission Date: 20161109
  Serious: Yes (Other)
  Sender: FDA-Public Use
  Company Number: None

PATIENT
  Age: 57 Year
  Sex: Female
  Weight: 97.52 kg

DRUGS (5)
  1. VITAMIN D3 [Concomitant]
     Active Substance: CHOLECALCIFEROL
  2. COPAXONE [Suspect]
     Active Substance: GLATIRAMER ACETATE
     Indication: MULTIPLE SCLEROSIS
     Dosage: 1 INJECTION (S) 3 X^S PER WEEK GIVEN INTO/UNDER THE SKIN
     Dates: start: 20150404, end: 20160808
  3. ATENOLOL. [Concomitant]
     Active Substance: ATENOLOL
  4. CALCIUM CITRATE +D3 [Concomitant]
  5. HYDROCHLOROTHIAZIDE. [Concomitant]
     Active Substance: HYDROCHLOROTHIAZIDE

REACTIONS (4)
  - Fear [None]
  - Head injury [None]
  - Back injury [None]
  - Syncope [None]

NARRATIVE: CASE EVENT DATE: 20160805
